FAERS Safety Report 17113206 (Version 3)
Quarter: 2020Q4

REPORT INFORMATION
  Report Type: Spontaneous
  Country: US (occurrence: US)
  Receive Date: 20191204
  Receipt Date: 20201211
  Transmission Date: 20210113
  Serious: Yes (Other)
  Sender: FDA-Public Use
  Company Number: US-SA-2019SA332460

PATIENT

DRUGS (1)
  1. ZANTAC 150 (RANITIDINE HYDROCHLORIDE) [Suspect]
     Active Substance: RANITIDINE HYDROCHLORIDE
     Dosage: 150 MG, 3-4 TIMES A DAY
     Route: 048
     Dates: start: 198905, end: 201909

REACTIONS (6)
  - Anxiety [Unknown]
  - Renal cancer [Unknown]
  - Pain [Unknown]
  - Anhedonia [Unknown]
  - Gastric cancer [Unknown]
  - Emotional distress [Unknown]

NARRATIVE: CASE EVENT DATE: 20140101
